FAERS Safety Report 8029506-3 (Version None)
Quarter: 2012Q1

REPORT INFORMATION
  Report Type: 
  Country: None (occurrence: None)
  Receive Date: 20120109
  Receipt Date: 20111230
  Transmission Date: 20120608
  Serious: Yes (Hospitalization)
  Sender: FDA-Public Use
  Company Number: US-BIOGENIDEC-2011BI018104

PATIENT
  Age: 53 Year
  Sex: Female

DRUGS (5)
  1. FLEXERIL [Concomitant]
  2. BACLOFEN [Concomitant]
  3. AVONEX [Suspect]
     Indication: MULTIPLE SCLEROSIS
     Route: 030
     Dates: start: 20100501, end: 20110512
  4. AVONEX [Suspect]
     Route: 030
  5. CELEXA [Concomitant]

REACTIONS (7)
  - SEPSIS [None]
  - NECROTISING FASCIITIS [None]
  - KIDNEY INFECTION [None]
  - HYPOTENSION [None]
  - APHAGIA [None]
  - ABASIA [None]
  - PAIN IN EXTREMITY [None]
